FAERS Safety Report 15758235 (Version 3)
Quarter: 2019Q1

REPORT INFORMATION
  Report Type: Report from Study
  Country: None (occurrence: US)
  Receive Date: 20181225
  Receipt Date: 20190306
  Transmission Date: 20190417
  Serious: Yes (Other)
  Sender: FDA-Public Use
  Company Number: US-ABBVIE-18K-163-2596744-00

PATIENT
  Age: 69 Year
  Sex: Male

DRUGS (1)
  1. HUMIRA [Suspect]
     Active Substance: ADALIMUMAB
     Indication: PSORIASIS
     Dosage: GIVEN 15TH AND 30TH OF EACH MONTH
     Route: 058

REACTIONS (3)
  - Skin mass [Unknown]
  - Brain neoplasm benign [Recovered/Resolved]
  - Fall [Unknown]
